FAERS Safety Report 4782894-3 (Version None)
Quarter: 2005Q3

REPORT INFORMATION
  Report Type: 
  Country: None (occurrence: None)
  Receive Date: 20050914
  Receipt Date: 20050601
  Transmission Date: 20060218
  Serious: Yes (Hospitalization)
  Sender: FDA-Public Use
  Company Number: 163-20785-05060008

PATIENT
  Age: 40 Year
  Sex: Female

DRUGS (2)
  1. THALOMID [Suspect]
     Indication: MULTIPLE MYELOMA
     Dosage: 200 MG, DAILY, ORAL; 50 MG, DAILY
     Route: 048
     Dates: start: 20050302
  2. THALOMID [Suspect]
     Indication: MULTIPLE MYELOMA
     Dosage: 200 MG, DAILY, ORAL; 50 MG, DAILY
     Route: 048
     Dates: start: 20050705

REACTIONS (2)
  - DISEASE PROGRESSION [None]
  - PYREXIA [None]
